FAERS Safety Report 19841456 (Version 1)
Quarter: 2021Q3

REPORT INFORMATION
  Report Type: Spontaneous
  Country: US (occurrence: US)
  Receive Date: 20210915
  Receipt Date: 20210915
  Transmission Date: 20211014
  Serious: Yes (Other)
  Sender: FDA-Public Use
  Company Number: US-GLAXOSMITHKLINE-US2021GSK191256

PATIENT
  Age: 30 Year
  Sex: Male

DRUGS (2)
  1. ACITRETIN. [Suspect]
     Active Substance: ACITRETIN
     Dosage: 35 MG (DAILY)
     Route: 048
  2. ACITRETIN. [Suspect]
     Active Substance: ACITRETIN
     Indication: PALMOPLANTAR KERATODERMA
     Dosage: 50 MG (DAILY)
     Route: 048

REACTIONS (6)
  - Haemorrhage [Recovered/Resolved]
  - Pain [Recovered/Resolved]
  - Papule [Recovered/Resolved]
  - Skin lesion [Recovered/Resolved]
  - Pyogenic granuloma [Recovered/Resolved]
  - Skin necrosis [Recovered/Resolved]
